FAERS Safety Report 5069784-6 (Version None)
Quarter: 2006Q3

REPORT INFORMATION
  Report Type: 
  Country: None (occurrence: None)
  Receive Date: 20060803
  Receipt Date: 20060726
  Transmission Date: 20061208
  Serious: Yes (Hospitalization)
  Sender: FDA-Public Use
  Company Number: AU-GLAXOSMITHKLINE-B0432361A

PATIENT
  Age: 44 Year
  Sex: Female

DRUGS (2)
  1. PAROXETINE HCL [Suspect]
     Indication: ANXIETY
     Dosage: 20MG SINGLE DOSE
     Route: 048
     Dates: start: 20060716, end: 20060716
  2. ETHINYL ESTRADIOL AND LEVONORGESTREL [Concomitant]
     Indication: ORAL CONTRACEPTION
     Route: 065

REACTIONS (7)
  - ANOREXIA [None]
  - DIZZINESS [None]
  - DRY MOUTH [None]
  - HALLUCINATION [None]
  - HYPERHIDROSIS [None]
  - NAUSEA [None]
  - PALPITATIONS [None]
